FAERS Safety Report 9869237 (Version 1)
Quarter: 2014Q1

REPORT INFORMATION
  Report Type: Spontaneous
  Country: GB (occurrence: GB)
  Receive Date: 20140205
  Receipt Date: 20140205
  Transmission Date: 20141002
  Serious: Yes (Other)
  Sender: FDA-Public Use
  Company Number: GB-009507513-1402GBR000130

PATIENT
  Age: 58 Year
  Sex: Female
  Weight: 74 kg

DRUGS (3)
  1. VICTRELIS [Suspect]
     Indication: CHRONIC HEPATITIS C
     Dosage: 800 MG, TID
     Route: 048
     Dates: start: 20130205, end: 20130723
  2. REBETOL [Suspect]
     Indication: CHRONIC HEPATITIS C
     Dosage: 1000 MG, QD
     Route: 048
     Dates: start: 20130108, end: 20130723
  3. VIRAFERONPEG [Suspect]
     Indication: CHRONIC HEPATITIS C
     Dosage: 100 MICROGRAM, QW
     Route: 058
     Dates: start: 20130108, end: 20130723

REACTIONS (6)
  - Aspartate aminotransferase abnormal [Unknown]
  - Disturbance in attention [Not Recovered/Not Resolved]
  - Hypercholesterolaemia [Unknown]
  - Hypothyroidism [Unknown]
  - Amnesia [Not Recovered/Not Resolved]
  - Fatigue [Not Recovered/Not Resolved]
